FAERS Safety Report 5615317-2 (Version None)
Quarter: 2008Q1

REPORT INFORMATION
  Report Type: 
  Country: None (occurrence: None)
  Receive Date: 20080204
  Receipt Date: 20080204
  Transmission Date: 20080703
  Serious: Yes (Hospitalization)
  Sender: FDA-Public Use
  Company Number: None

PATIENT
  Age: 87 Year
  Sex: Male
  Weight: 81.1 kg

DRUGS (2)
  1. AMOXICILLIN [Suspect]
     Indication: INFECTION
     Dosage: 500MG TID PO
     Route: 048
     Dates: start: 20080118, end: 20080128
  2. HYDROXYZINE [Suspect]
     Indication: ANXIETY
     Dosage: 25MG TID PO
     Route: 048
     Dates: start: 20080118, end: 20080131

REACTIONS (4)
  - DIARRHOEA [None]
  - FALL [None]
  - MENTAL STATUS CHANGES [None]
  - URINARY RETENTION [None]
